FAERS Safety Report 11450292 (Version 5)
Quarter: 2016Q1

REPORT INFORMATION
  Report Type: Spontaneous
  Country: US (occurrence: US)
  Receive Date: 20150903
  Receipt Date: 20160222
  Transmission Date: 20160525
  Serious: Yes (Hospitalization)
  Sender: FDA-Public Use
  Company Number: US-UNITED THERAPEUTICS-UNT-2015-010216

PATIENT
  Age: 74 Year
  Sex: Female
  Weight: 112.47 kg

DRUGS (3)
  1. TYVASO [Suspect]
     Active Substance: TREPROSTINIL
     Indication: PULMONARY HYPERTENSION
     Dosage: 18-54 ?G, QID
     Dates: start: 20120906
  2. TYVASO [Suspect]
     Active Substance: TREPROSTINIL
     Dosage: 18-54 ?G, QID
  3. REVATIO [Concomitant]
     Active Substance: SILDENAFIL CITRATE
     Indication: PRODUCT USED FOR UNKNOWN INDICATION

REACTIONS (6)
  - Oxygen saturation decreased [Recovered/Resolved]
  - Pulmonary oedema [Unknown]
  - Dyspnoea [Unknown]
  - Keloid scar [Unknown]
  - Fungal infection [Unknown]
  - Respiratory distress [Unknown]

NARRATIVE: CASE EVENT DATE: 201508
